FAERS Safety Report 6902560-5 (Version None)
Quarter: 2010Q3

REPORT INFORMATION
  Report Type: 
  Country: None (occurrence: None)
  Receive Date: 20100803
  Receipt Date: 20080530
  Transmission Date: 20110219
  Serious: No
  Sender: FDA-Public Use
  Company Number: US-PFIZER INC-2008046835

PATIENT
  Sex: Female
  Weight: 88.6 kg

DRUGS (8)
  1. LYRICA [Suspect]
     Indication: NEUROPATHY PERIPHERAL
     Dates: start: 20080527, end: 20080529
  2. LYRICA [Suspect]
     Indication: FIBROMYALGIA
  3. DRUG USED IN DIABETES [Concomitant]
     Indication: DIABETES MELLITUS
  4. CHOLESTEROL- AND TRIGLYCERIDE REDUCERS [Concomitant]
     Indication: BLOOD CHOLESTEROL INCREASED
  5. SYNTHROID [Concomitant]
     Indication: HYPOTHYROIDISM
  6. PREMARIN [Concomitant]
  7. POTASSIUM [Concomitant]
  8. VOLTAREN [Concomitant]

REACTIONS (3)
  - DIZZINESS [None]
  - FEELING DRUNK [None]
  - GAIT DISTURBANCE [None]
